FAERS Safety Report 13130152 (Version 1)
Quarter: 2017Q1

REPORT INFORMATION
  Report Type: Spontaneous
  Country: US (occurrence: US)
  Receive Date: 20170119
  Receipt Date: 20170119
  Transmission Date: 20170428
  Serious: No
  Sender: FDA-Public Use
  Company Number: US-PERRIGO-16US013795

PATIENT
  Age: 64 Year
  Sex: Female
  Weight: 58.05 kg

DRUGS (2)
  1. TRAMADOL. [Concomitant]
     Active Substance: TRAMADOL
     Indication: BACK PAIN
     Dosage: UNK
     Route: 065
  2. OMEPRAZOLE DELAYED RELEASE [Suspect]
     Active Substance: OMEPRAZOLE
     Indication: GASTRIC HAEMORRHAGE
     Dosage: 20 MG AS NEEDED
     Route: 048
     Dates: start: 2011

REACTIONS (3)
  - Erythema [Recovered/Resolved]
  - Eye swelling [Recovered/Resolved]
  - Skin warm [Recovered/Resolved]

NARRATIVE: CASE EVENT DATE: 20160222
